FAERS Safety Report 4469561-0 (Version None)
Quarter: 2004Q4

REPORT INFORMATION
  Report Type: 
  Country: None (occurrence: None)
  Receive Date: 20041008
  Receipt Date: 20040928
  Transmission Date: 20050328
  Serious: Yes (Life-Threatening, Hospitalization)
  Sender: FDA-Public Use
  Company Number: GB-BRISTOL-MYERS SQUIBB COMPANY-12724647

PATIENT
  Age: 34 Year
  Sex: Female

DRUGS (10)
  1. IFOSFAMIDE [Suspect]
     Indication: LEIOMYOSARCOMA
     Route: 042
     Dates: start: 20040830, end: 20040901
  2. MESNA [Suspect]
     Indication: LEIOMYOSARCOMA
     Route: 042
     Dates: start: 20040801, end: 20040901
  3. MOVICOL [Concomitant]
     Dates: start: 20040812
  4. MORPHINE SULFATE [Concomitant]
  5. PARACETAMOL [Concomitant]
  6. PHENYTOIN [Concomitant]
     Indication: PROPHYLACTIC CHEMOTHERAPY
  7. GRANISETRON [Concomitant]
  8. METOCLOPRAMIDE [Concomitant]
  9. DEXAMETHASONE [Concomitant]
  10. PANTOPRAZOLE [Concomitant]

REACTIONS (1)
  - ENCEPHALOPATHY [None]
